FAERS Safety Report 24368240 (Version 2)
Quarter: 2025Q3

REPORT INFORMATION
  Report Type: Spontaneous
  Country: US (occurrence: US)
  Receive Date: 20240926
  Receipt Date: 20250804
  Transmission Date: 20251020
  Serious: No
  Sender: SANOFI AVENTIS
  Company Number: US-SA-2024SA274766

PATIENT
  Sex: Female
  Weight: 56.36 kg

DRUGS (11)
  1. DUPIXENT [Suspect]
     Active Substance: DUPILUMAB
     Indication: Dermatitis atopic
     Dosage: 300 MG, QOW
     Route: 058
     Dates: end: 20250718
  2. Butalbital;Paracetamol [Concomitant]
  3. ROSUVASTATIN CALCIUM [Concomitant]
     Active Substance: ROSUVASTATIN CALCIUM
  4. BUSPIRONE HCL [Concomitant]
     Active Substance: BUSPIRONE HYDROCHLORIDE
  5. PAXIL [Concomitant]
     Active Substance: PAROXETINE HYDROCHLORIDE
  6. FLUTICASONE PROPIONATE [Concomitant]
     Active Substance: FLUTICASONE PROPIONATE
  7. NORVASC [Concomitant]
     Active Substance: AMLODIPINE BESYLATE
  8. DEXILANT [Concomitant]
     Active Substance: DEXLANSOPRAZOLE
  9. BUDESONIDE [Concomitant]
     Active Substance: BUDESONIDE
  10. OMEPRAZOLE [Concomitant]
     Active Substance: OMEPRAZOLE
  11. B12 ACTIVE [Concomitant]

REACTIONS (3)
  - Dermatitis atopic [Unknown]
  - Product dose omission issue [Unknown]
  - Pruritus [Unknown]
